FAERS Safety Report 22166707 (Version 1)
Quarter: 2023Q2

REPORT INFORMATION
  Report Type: Spontaneous
  Country: US (occurrence: None)
  Receive Date: 20230401
  Receipt Date: 20230401
  Transmission Date: 20230721
  Serious: No
  Sender: FDA-Public Use
  Company Number: None

PATIENT
  Sex: Male
  Weight: 69.75 kg

DRUGS (2)
  1. INVEGA SUSTENNA [Suspect]
     Active Substance: PALIPERIDONE PALMITATE
     Indication: Schizophrenia
     Dosage: OTHER FREQUENCY : 1 INJECTION PER MO;?
     Route: 030
     Dates: start: 20230113
  2. HYDROXYZINE [Concomitant]
     Active Substance: HYDROXYZINE HYDROCHLORIDE

REACTIONS (17)
  - Dysphagia [None]
  - Eating disorder [None]
  - Restlessness [None]
  - Anxiety [None]
  - Loss of libido [None]
  - Erectile dysfunction [None]
  - Pain [None]
  - Nipple swelling [None]
  - Nausea [None]
  - Vomiting [None]
  - Quality of life decreased [None]
  - Loss of personal independence in daily activities [None]
  - Abnormal dreams [None]
  - Poor quality sleep [None]
  - Abnormal dreams [None]
  - Increased appetite [None]
  - Weight increased [None]
